FAERS Safety Report 23723985 (Version 1)
Quarter: 2024Q2

REPORT INFORMATION
  Report Type: Spontaneous
  Country: US (occurrence: US)
  Receive Date: 20240409
  Receipt Date: 20240409
  Transmission Date: 20240716
  Serious: Yes (Other)
  Sender: FDA-Public Use
  Company Number: US-MEDEXUS PHARMA, INC.-2024MED00064

PATIENT
  Sex: Male

DRUGS (3)
  1. RASUVO [Suspect]
     Active Substance: METHOTREXATE SODIUM
     Indication: Rheumatoid arthritis
     Dosage: 20 MG, 1X/WEEK ON MONDAYS
  2. RASUVO [Suspect]
     Active Substance: METHOTREXATE SODIUM
     Dosage: UNK
     Dates: start: 20240205, end: 20240317
  3. UNSPECIFIED INGREDIENT [Concomitant]
     Active Substance: UNSPECIFIED INGREDIENT

REACTIONS (12)
  - Diverticulitis [Unknown]
  - Pneumothorax [Unknown]
  - Pleural effusion [Unknown]
  - Gastrointestinal neoplasm [Unknown]
  - Vitamin D decreased [Recovered/Resolved]
  - Diaphragmatic hernia [Unknown]
  - Gastrointestinal disorder [Unknown]
  - Constipation [Unknown]
  - Arteriosclerosis [Unknown]
  - Intervertebral disc disorder [Unknown]
  - Spinal stenosis [Unknown]
  - Diarrhoea [Unknown]

NARRATIVE: CASE EVENT DATE: 20240101
